FAERS Safety Report 4453974-7 (Version None)
Quarter: 2004Q3

REPORT INFORMATION
  Report Type: 
  Country: None (occurrence: None)
  Receive Date: 20040920
  Receipt Date: 20040908
  Transmission Date: 20050211
  Serious: Yes (Death)
  Sender: FDA-Public Use
  Company Number: ZA-GLAXOSMITHKLINE-B0344908A

PATIENT
  Age: 52 Year
  Sex: Female
  Weight: 41 kg

DRUGS (2)
  1. FLUTICASONE PROPIONATE [Suspect]
     Dosage: 500UG TWICE PER DAY
     Route: 055
     Dates: start: 20010808, end: 20040806
  2. VENTOLIN [Concomitant]

REACTIONS (6)
  - CARDIAC ARREST [None]
  - CHRONIC OBSTRUCTIVE AIRWAYS DISEASE EXACERBATED [None]
  - DYSPNOEA [None]
  - HYPERHIDROSIS [None]
  - PUPIL FIXED [None]
  - PYREXIA [None]
